FAERS Safety Report 8608719 (Version 4)
Quarter: 2013Q2

REPORT INFORMATION
  Report Type: Report from Study
  Country: CA (occurrence: CA)
  Receive Date: 20120611
  Receipt Date: 20130626
  Transmission Date: 20140414
  Serious: Yes (Life-Threatening, Hospitalization, Other)
  Sender: FDA-Public Use
  Company Number: CA-BRISTOL-MYERS SQUIBB COMPANY-16655409

PATIENT
  Age: 57 Year
  Sex: Female
  Weight: 170 kg

DRUGS (8)
  1. ORENCIA [Suspect]
     Indication: RHEUMATOID ARTHRITIS
     Dosage: LAST DOSE 14OCT11,30MAY12,22AUG12,23OCT12?LOT#2C80093, EXP:SEP2014,2F716,EXP:APR15,JUL15
     Route: 042
     Dates: start: 20111014, end: 20130129
  2. METHOTREXATE [Suspect]
     Dosage: INJ
  3. PREDNISONE [Suspect]
  4. ATIVAN [Concomitant]
  5. MELOXICAM [Concomitant]
  6. FUROSEMIDE [Concomitant]
  7. FOLIC ACID [Concomitant]
  8. HYDROXYCHLOROQUINE [Concomitant]

REACTIONS (12)
  - Lung infection [Not Recovered/Not Resolved]
  - Pulmonary mass [Not Recovered/Not Resolved]
  - Rheumatoid arthritis [Not Recovered/Not Resolved]
  - Anxiety [Unknown]
  - Depression [Unknown]
  - Empyema [Unknown]
  - Bronchopleural fistula [Unknown]
  - Pain in jaw [Unknown]
  - Rash [Unknown]
  - Urinary tract infection [Not Recovered/Not Resolved]
  - Haemoglobin decreased [Not Recovered/Not Resolved]
  - Bacterial disease carrier [Unknown]
